FAERS Safety Report 9242805 (Version 2)
Quarter: 2013Q4

REPORT INFORMATION
  Report Type: Spontaneous
  Country: BR (occurrence: BR)
  Receive Date: 20130419
  Receipt Date: 20131106
  Transmission Date: 20140711
  Serious: Yes (Other)
  Sender: FDA-Public Use
  Company Number: BR-AMGEN-BRASP2013026901

PATIENT
  Age: 60 Year
  Sex: Female
  Weight: 75 kg

DRUGS (1)
  1. ENBREL [Suspect]
     Indication: PSORIATIC ARTHROPATHY
     Dosage: 25 MG, ONCE WEEKLY
     Route: 065
     Dates: start: 200809, end: 2013

REACTIONS (4)
  - Joint stiffness [Not Recovered/Not Resolved]
  - Atrophy [Not Recovered/Not Resolved]
  - Weight decreased [Unknown]
  - Leishmaniasis [Not Recovered/Not Resolved]
